FAERS Safety Report 10158527 (Version 1)
Quarter: 2014Q2

REPORT INFORMATION
  Report Type: Spontaneous
  Country: US (occurrence: US)
  Receive Date: 20140507
  Receipt Date: 20140507
  Transmission Date: 20141212
  Serious: No
  Sender: FDA-Public Use
  Company Number: US-009507513-1405USA001703

PATIENT
  Age: 19 Year
  Sex: Female

DRUGS (1)
  1. ASMANEX TWISTHALER [Suspect]
     Indication: ASTHMA
     Dosage: ^220 MCG/ONCE DAILY^
     Route: 055
     Dates: start: 2007

REACTIONS (1)
  - Hypertrichosis [Not Recovered/Not Resolved]
